FAERS Safety Report 7167378-X (Version None)
Quarter: 2010Q4

REPORT INFORMATION
  Report Type: 
  Country: None (occurrence: None)
  Receive Date: 20101216
  Receipt Date: 20100209
  Transmission Date: 20110411
  Serious: No
  Sender: FDA-Public Use
  Company Number: A0683508A

PATIENT
  Age: 44 Year
  Sex: Female

DRUGS (2)
  1. NICODERM CQ [Suspect]
     Route: 062
  2. NICOTINE POLACRILEX [Suspect]
     Dates: start: 20070919

REACTIONS (6)
  - APPLICATION SITE DRYNESS [None]
  - APPLICATION SITE PAIN [None]
  - APPLICATION SITE PRURITUS [None]
  - INTENTIONAL DRUG MISUSE [None]
  - NICOTINE DEPENDENCE [None]
  - PRODUCT QUALITY ISSUE [None]
